FAERS Safety Report 5030535-2 (Version None)
Quarter: 2006Q2

REPORT INFORMATION
  Report Type: 
  Country: None (occurrence: None)
  Receive Date: 20060615
  Receipt Date: 20060604
  Transmission Date: 20061013
  Serious: Yes (Other)
  Sender: FDA-Public Use
  Company Number: 2006072381

PATIENT
  Age: 22 Year
  Sex: Male
  Weight: 136.0791 kg

DRUGS (5)
  1. LYRICA [Suspect]
     Indication: MIGRAINE PROPHYLAXIS
     Dates: start: 20060401
  2. PROZAC [Concomitant]
  3. LORTAB [Concomitant]
  4. VALIUM [Concomitant]
  5. EXCEDRIN MIGRAINE (ACETYLSALICYLIC ACID, CAFFEINE, PARACETAMOL) [Concomitant]

REACTIONS (3)
  - CONVULSION [None]
  - INAPPROPRIATE SCHEDULE OF DRUG ADMINISTRATION [None]
  - TREATMENT NONCOMPLIANCE [None]
